FAERS Safety Report 14284755 (Version 1)
Quarter: 2017Q4

REPORT INFORMATION
  Report Type: Spontaneous
  Country: US (occurrence: None)
  Receive Date: 20171214
  Receipt Date: 20171214
  Transmission Date: 20180321
  Serious: Yes (Other)
  Sender: FDA-Public Use
  Company Number: None

PATIENT
  Age: 71 Year
  Sex: Male
  Weight: 68.04 kg

DRUGS (3)
  1. NITROFURANTOIN MONOHYDRATE MACROCRYSTALS [Suspect]
     Active Substance: NITROFURANTOIN\NITROFURANTOIN MONOHYDRATE
     Dosage: 100MG 60 TWICE DAILY MOUTH
     Route: 048
     Dates: start: 20091102, end: 20091105
  2. TAMSULOSIN [Concomitant]
     Active Substance: TAMSULOSIN
  3. FINASTERIDE. [Concomitant]
     Active Substance: FINASTERIDE

REACTIONS (1)
  - Rash [None]

NARRATIVE: CASE EVENT DATE: 20091105
